FAERS Safety Report 6538330-X (Version None)
Quarter: 2010Q1

REPORT INFORMATION
  Report Type: 
  Country: None (occurrence: None)
  Receive Date: 20100114
  Receipt Date: 20100107
  Transmission Date: 20100710
  Serious: Yes (Hospitalization)
  Sender: FDA-Public Use
  Company Number: GB-PFIZER INC-2009310430

PATIENT
  Age: 67 Year
  Sex: Female

DRUGS (4)
  1. BLINDED *PLACEBO [Suspect]
     Indication: RHEUMATOID ARTHRITIS
     Dosage: UNK
     Dates: start: 20080411, end: 20081101
  2. BLINDED ATORVASTATIN CALCIUM [Suspect]
     Indication: RHEUMATOID ARTHRITIS
     Dosage: UNK
     Dates: start: 20080411, end: 20081101
  3. BLINDED *PLACEBO [Suspect]
     Indication: CARDIOVASCULAR EVENT PROPHYLAXIS
  4. BLINDED ATORVASTATIN CALCIUM [Suspect]
     Indication: CARDIOVASCULAR EVENT PROPHYLAXIS

REACTIONS (1)
  - INTESTINAL FUNCTIONAL DISORDER [None]
